FAERS Safety Report 18628511 (Version 1)
Quarter: 2020Q4

REPORT INFORMATION
  Report Type: Spontaneous
  Country: TW (occurrence: TW)
  Receive Date: 20201217
  Receipt Date: 20201217
  Transmission Date: 20210114
  Serious: Yes (Hospitalization)
  Sender: FDA-Public Use
  Company Number: TW-CELGENEUS-TWN-20201203410

PATIENT
  Age: 75 Year
  Sex: Female
  Weight: 56 kg

DRUGS (3)
  1. POMALYST [Suspect]
     Active Substance: POMALIDOMIDE
     Indication: PLASMA CELL MYELOMA
     Dosage: 4 MILLIGRAM
     Route: 048
     Dates: start: 20190130, end: 20200715
  2. RYTMONORM [Concomitant]
     Active Substance: PROPAFENONE
     Indication: TACHYCARDIA
     Dosage: 450 MILLIGRAM
     Route: 048
     Dates: start: 20200715
  3. UCEFA [Concomitant]
     Indication: C-REACTIVE PROTEIN INCREASED
     Dosage: 1500 MILLIGRAM
     Route: 048
     Dates: start: 20201111, end: 20201116

REACTIONS (2)
  - Pneumonia [Recovered/Resolved]
  - Cardiomegaly [Recovered/Resolved]

NARRATIVE: CASE EVENT DATE: 20200731
